FAERS Safety Report 23934604 (Version 2)
Quarter: 2024Q2

REPORT INFORMATION
  Report Type: Spontaneous
  Country: SK (occurrence: SK)
  Receive Date: 20240603
  Receipt Date: 20240624
  Transmission Date: 20240716
  Serious: Yes (Other)
  Sender: FDA-Public Use
  Company Number: SK-ABBVIE-5782400

PATIENT
  Sex: Male
  Weight: 70 kg

DRUGS (3)
  1. RINVOQ [Suspect]
     Active Substance: UPADACITINIB
     Indication: Dermatitis atopic
     Dosage: TREATMENT RESTARTED AGAIN
     Route: 048
     Dates: start: 2024
  2. RINVOQ [Suspect]
     Active Substance: UPADACITINIB
     Indication: Dermatitis atopic
     Dosage: FREQUENCY TEXT 1 IN 1
     Route: 048
     Dates: start: 20240314, end: 20240510
  3. CYCLOSPORINE [Concomitant]
     Active Substance: CYCLOSPORINE
     Indication: Product used for unknown indication

REACTIONS (4)
  - Skin burning sensation [Recovered/Resolved]
  - Dermatitis atopic [Recovered/Resolved]
  - Eczema [Unknown]
  - Skin weeping [Unknown]

NARRATIVE: CASE EVENT DATE: 20240101
